FAERS Safety Report 18168163 (Version 1)
Quarter: 2020Q3

REPORT INFORMATION
  Report Type: Spontaneous
  Country: US (occurrence: US)
  Receive Date: 20200818
  Receipt Date: 20200818
  Transmission Date: 20201103
  Serious: No
  Sender: FDA-Public Use
  Company Number: None

PATIENT
  Age: 57 Year
  Sex: Male

DRUGS (1)
  1. COSENTYX [Suspect]
     Active Substance: SECUKINUMAB
     Indication: PSORIATIC ARTHROPATHY
     Dosage: INJECT 150MG (1 SYRINGE) SUBCUTANEOUSLY  ON DAY 28 (DOSE 5) THEN EVERY 4 WEEKS AS DIRECTED
     Route: 058
     Dates: start: 202006

REACTIONS (1)
  - Fluid retention [None]
